FAERS Safety Report 5765878-8 (Version None)
Quarter: 2008Q2

REPORT INFORMATION
  Report Type: 
  Country: None (occurrence: None)
  Receive Date: 20080611
  Receipt Date: 20080530
  Transmission Date: 20081010
  Serious: Yes (Hospitalization)
  Sender: FDA-Public Use
  Company Number: FR-WYE-H04368308

PATIENT
  Sex: Female

DRUGS (4)
  1. PANTOPRAZOLE SODIUM [Suspect]
     Dosage: UNKNOWN DOSE
     Route: 048
  2. PROZAC [Suspect]
     Indication: DEPRESSION
  3. PREVISCAN [Concomitant]
     Dosage: UNKNOWN
     Dates: start: 20080225
  4. SEROPLEX [Suspect]
     Dates: start: 20080220, end: 20080226

REACTIONS (2)
  - FALL [None]
  - INAPPROPRIATE ANTIDIURETIC HORMONE SECRETION [None]
